APPROVED DRUG PRODUCT: SABRIL
Active Ingredient: VIGABATRIN
Strength: 500MG
Dosage Form/Route: TABLET;ORAL
Application: N020427 | Product #001 | TE Code: AB
Applicant: LUNDBECK PHARMACEUTICALS LLC
Approved: Aug 21, 2009 | RLD: Yes | RS: Yes | Type: RX